FAERS Safety Report 9424581 (Version 1)
Quarter: 2013Q3

REPORT INFORMATION
  Report Type: Spontaneous
  Country: US (occurrence: None)
  Receive Date: 20130726
  Receipt Date: 20130726
  Transmission Date: 20140515
  Serious: Yes (Other)
  Sender: FDA-Public Use
  Company Number: None

PATIENT
  Age: 65 None
  Sex: Male
  Weight: 102.06 kg

DRUGS (7)
  1. METFORMIN [Suspect]
     Route: 048
     Dates: start: 20130710, end: 20130724
  2. GABAPENTIN [Concomitant]
  3. NORVASC [Concomitant]
  4. CELEBREX [Concomitant]
  5. PRISTIQ ER [Concomitant]
  6. VOLTAREN GEL [Concomitant]
  7. ANALAPRIL [Concomitant]

REACTIONS (3)
  - Confusional state [None]
  - Aphasia [None]
  - Dysarthria [None]
